FAERS Safety Report 8808693 (Version 1)
Quarter: 2012Q4

REPORT INFORMATION
  Report Type: Spontaneous
  Country: US (occurrence: None)
  Receive Date: 20120921
  Receipt Date: 20120921
  Transmission Date: 20130627
  Serious: Yes (Life-Threatening, Hospitalization, Disabling, Other)
  Sender: FDA-Public Use
  Company Number: None

PATIENT
  Age: 57 Year
  Sex: Female
  Weight: 72.58 kg

DRUGS (6)
  1. AMPYRA [Suspect]
     Indication: MS
     Route: 048
     Dates: start: 201007, end: 201201
  2. AMPYRA [Suspect]
     Indication: WALKING DIFFICULTY
     Route: 048
     Dates: start: 201007, end: 201201
  3. MULTIVITAMIN [Concomitant]
  4. BONIVA [Concomitant]
  5. LISINOPRIL [Concomitant]
  6. SIMVASTATIN [Concomitant]

REACTIONS (13)
  - Psychotic disorder [None]
  - Dehydration [None]
  - Multi-organ failure [None]
  - Encephalopathy [None]
  - Dysphagia [None]
  - Acute pulmonary oedema [None]
  - Convulsion [None]
  - Respiratory failure [None]
  - Cardiac failure congestive [None]
  - Renal failure [None]
  - Movement disorder [None]
  - Abasia [None]
  - Toxicity to various agents [None]
